FAERS Safety Report 24715656 (Version 1)
Quarter: 2024Q4

REPORT INFORMATION
  Report Type: Spontaneous
  Country: US (occurrence: US)
  Receive Date: 20241210
  Receipt Date: 20241210
  Transmission Date: 20250114
  Serious: Yes (Other)
  Sender: BIOLOGICAL E. LIMITED
  Company Number: US-BELUSA-2024BELLIT0115

PATIENT

DRUGS (1)
  1. HEPARIN SODIUM [Suspect]
     Active Substance: HEPARIN SODIUM
     Indication: Product used for unknown indication
     Route: 065

REACTIONS (2)
  - Hyperkalaemia [Recovered/Resolved]
  - Condition aggravated [Recovered/Resolved]
